FAERS Safety Report 7403288-8 (Version None)
Quarter: 2011Q2

REPORT INFORMATION
  Report Type: 
  Country: None (occurrence: None)
  Receive Date: 20110408
  Receipt Date: 20110325
  Transmission Date: 20111010
  Serious: Yes (Hospitalization)
  Sender: FDA-Public Use
  Company Number: US-JNJFOC-20110400295

PATIENT
  Sex: Female
  Weight: 90.72 kg

DRUGS (6)
  1. REMICADE [Suspect]
     Route: 042
  2. PREDNISONE [Concomitant]
     Indication: CROHN'S DISEASE
     Dosage: A VERY HIGH DOSE
     Route: 048
  3. LASIX [Concomitant]
     Indication: OEDEMA PERIPHERAL
     Dosage: AS NEEDED
     Route: 048
  4. REMICADE [Suspect]
     Route: 042
  5. ENTOCORT EC [Concomitant]
     Indication: CROHN'S DISEASE
     Route: 048
  6. REMICADE [Suspect]
     Indication: CROHN'S DISEASE
     Route: 042

REACTIONS (15)
  - OSTEOARTHRITIS [None]
  - INCREASED TENDENCY TO BRUISE [None]
  - NAUSEA [None]
  - DIARRHOEA [None]
  - CATARACT [None]
  - FISTULA [None]
  - EATING DISORDER [None]
  - VESICAL FISTULA [None]
  - ABNORMAL LOSS OF WEIGHT [None]
  - ERYTHEMA NODOSUM [None]
  - MUSCLE SPASMS [None]
  - ANAL FISTULA [None]
  - OSTEOPOROSIS [None]
  - GASTROOESOPHAGEAL REFLUX DISEASE [None]
  - URINARY SEDIMENT PRESENT [None]
